FAERS Safety Report 25796747 (Version 3)
Quarter: 2025Q4

REPORT INFORMATION
  Report Type: Spontaneous
  Country: US (occurrence: US)
  Receive Date: 20250912
  Receipt Date: 20251107
  Transmission Date: 20260117
  Serious: Yes (Other)
  Sender: BRISTOL-MYERS SQUIBB COMPANY
  Company Number: US-BRISTOL-MYERS SQUIBB COMPANY-2025-126264

PATIENT
  Age: 74 Year
  Sex: Male

DRUGS (4)
  1. POMALYST [Suspect]
     Active Substance: POMALIDOMIDE
     Indication: Plasma cell myeloma
     Dosage: ONCE DAILY
     Route: 048
     Dates: start: 202401
  2. POMALYST [Suspect]
     Active Substance: POMALIDOMIDE
     Dosage: STRENGTH: 2MG?FREQUENCY: TAKE 1 CAPSULE BY MOUTH 1 TIME A DAY FOR 21 DAYS ON THEN 7 DAYS OFF
     Route: 048
     Dates: start: 202401
  3. POMALYST [Suspect]
     Active Substance: POMALIDOMIDE
  4. INOBRODIB [Suspect]
     Active Substance: INOBRODIB
     Indication: Product used for unknown indication

REACTIONS (5)
  - Platelet count decreased [Unknown]
  - Rash [Unknown]
  - Heart rate decreased [Unknown]
  - Neuropathy peripheral [Unknown]
  - Pruritus [Recovered/Resolved]

NARRATIVE: CASE EVENT DATE: 20251001
